FAERS Safety Report 8273410-2 (Version None)
Quarter: 2012Q2

REPORT INFORMATION
  Report Type: 
  Country: None (occurrence: None)
  Receive Date: 20120409
  Receipt Date: 20120409
  Transmission Date: 20120825
  Serious: Yes (Hospitalization)
  Sender: FDA-Public Use
  Company Number: None

PATIENT
  Age: 81 Year
  Sex: Male
  Weight: 81.6 kg

DRUGS (1)
  1. METHYLPREDNISOLONE [Suspect]
     Indication: AMAUROSIS FUGAX
     Dosage: 250 MG OTHER IV
     Route: 042
     Dates: start: 20120124, end: 20120125

REACTIONS (1)
  - DELIRIUM [None]
